FAERS Safety Report 7325426-8 (Version None)
Quarter: 2011Q1

REPORT INFORMATION
  Report Type: 
  Country: None (occurrence: None)
  Receive Date: 20110302
  Receipt Date: 20100928
  Transmission Date: 20110831
  Serious: Yes (Hospitalization, Other)
  Sender: FDA-Public Use
  Company Number: US-BAYER-201033408NA

PATIENT
  Sex: Female
  Weight: 59 kg

DRUGS (10)
  1. LOESTRIN 1.5/30 [Concomitant]
     Indication: MENSTRUATION IRREGULAR
  2. PREVACID [Concomitant]
     Dosage: 30 MG, QD
     Route: 048
     Dates: start: 20081101
  3. ZANTAC [Concomitant]
     Dosage: 150 MG, BID
     Route: 048
     Dates: start: 20081101
  4. NEXIUM [Concomitant]
     Dosage: 40 MG, QD
     Route: 048
     Dates: start: 20081201
  5. LORTAB [Concomitant]
     Dosage: 5 MG, UNK
     Route: 048
     Dates: start: 20081212
  6. YAZ [Suspect]
     Indication: ACNE
     Dosage: UNK
     Route: 048
     Dates: start: 20050101, end: 20100101
  7. YAZ [Suspect]
     Indication: PREMENSTRUAL SYNDROME
  8. ZOFRAN [Concomitant]
     Dosage: 8 MG, TID
     Route: 048
     Dates: start: 20081201
  9. CARAFATE [Concomitant]
     Dosage: UNK UNK, TID
     Route: 048
  10. TPN [Concomitant]
     Indication: PROBIOTIC THERAPY

REACTIONS (9)
  - VOMITING [None]
  - CHOLELITHIASIS [None]
  - GASTRITIS [None]
  - PAIN [None]
  - ABDOMINAL PAIN UPPER [None]
  - CONSTIPATION [None]
  - ABDOMINAL PAIN LOWER [None]
  - DIARRHOEA [None]
  - BILIARY DYSKINESIA [None]
